FAERS Safety Report 4292569-5 (Version None)
Quarter: 2004Q1

REPORT INFORMATION
  Report Type: 
  Country: None (occurrence: None)
  Receive Date: 20040126
  Receipt Date: 20031020
  Transmission Date: 20041129
  Serious: No
  Sender: FDA-Public Use
  Company Number: USA031050362

PATIENT
  Age: 76 Year
  Sex: Female
  Weight: 45 kg

DRUGS (4)
  1. FORTEO [Suspect]
     Indication: OSTEOPOROSIS
     Dosage: 20 UG/DAY
     Dates: start: 20030701
  2. ATENOLOL [Concomitant]
  3. ZANTAC [Concomitant]
  4. METAMUCIL-2 [Concomitant]

REACTIONS (4)
  - BURNING SENSATION [None]
  - MUSCLE CRAMP [None]
  - NAUSEA [None]
  - SENSORY DISTURBANCE [None]
